FAERS Safety Report 5489553-2 (Version None)
Quarter: 2007Q4

REPORT INFORMATION
  Report Type: 
  Country: None (occurrence: None)
  Receive Date: 20071016
  Receipt Date: 20071016
  Transmission Date: 20080405
  Serious: Yes (Hospitalization)
  Sender: FDA-Public Use
  Company Number: None

PATIENT
  Sex: Male
  Weight: 146.5118 kg

DRUGS (2)
  1. REVLIMID [Suspect]
     Indication: MULTIPLE MYELOMA
     Dosage: 25MG  DAILY  PO
     Route: 048
     Dates: start: 20070221, end: 20070721
  2. DEXAMETHASONE 0.5MG TAB [Concomitant]

REACTIONS (4)
  - DIASTOLIC DYSFUNCTION [None]
  - OEDEMA [None]
  - PAIN [None]
  - WEIGHT DECREASED [None]
